FAERS Safety Report 6700444-9 (Version None)
Quarter: 2010Q2

REPORT INFORMATION
  Report Type: 
  Country: None (occurrence: None)
  Receive Date: 20100428
  Receipt Date: 20100426
  Transmission Date: 20101027
  Serious: Yes (Other)
  Sender: FDA-Public Use
  Company Number: A0836139A

PATIENT
  Age: 67 Year
  Sex: Female

DRUGS (7)
  1. ALLI [Suspect]
     Indication: DRUG USE FOR UNKNOWN INDICATION
     Route: 048
  2. SYNTHROID [Concomitant]
     Route: 048
  3. HYZAAR [Concomitant]
  4. LIPITOR [Concomitant]
     Route: 048
  5. CALCIUM [Concomitant]
  6. FISH OIL [Concomitant]
  7. MULTI-VITAMIN [Concomitant]

REACTIONS (2)
  - DRUG ERUPTION [None]
  - RASH [None]
